FAERS Safety Report 8564692 (Version 2)
Quarter: 2013Q2

REPORT INFORMATION
  Report Type: Spontaneous
  Country: ES (occurrence: ES)
  Receive Date: 20120516
  Receipt Date: 20130523
  Transmission Date: 20140414
  Serious: Yes (Hospitalization)
  Sender: FDA-Public Use
  Company Number: ES-ASTRAZENECA-2012SE29514

PATIENT
  Age: 39 Year
  Sex: Female

DRUGS (5)
  1. VIMOVO [Suspect]
     Indication: BACK PAIN
     Dosage: 500MG/20MG, 1 DF, DAILY
     Route: 048
     Dates: start: 20110926, end: 20111210
  2. ADOLONTA [Suspect]
     Indication: BACK PAIN
     Route: 048
     Dates: start: 20111203, end: 20111210
  3. CITALOPRAM [Suspect]
     Indication: DEPRESSION
     Route: 048
     Dates: start: 20111130, end: 20111210
  4. ZALDIAR 37,5/325 MG (PARACETAMOLE/TRAMADOL HYDROCLORURE) EFFERVESCENT [Concomitant]
     Indication: BACK PAIN
     Dosage: 37,5/325 MG, 112MG, EVERY DAY
     Route: 048
     Dates: start: 20111121, end: 20111210
  5. DIAZEPAM [Concomitant]
     Indication: ANXIETY
     Route: 048
     Dates: start: 20111205, end: 20111209

REACTIONS (1)
  - Myoclonus [Recovering/Resolving]
